FAERS Safety Report 6688462-0 (Version None)
Quarter: 2010Q2

REPORT INFORMATION
  Report Type: 
  Country: None (occurrence: None)
  Receive Date: 20100420
  Receipt Date: 20100409
  Transmission Date: 20101027
  Serious: Yes (Other)
  Sender: FDA-Public Use
  Company Number: US-AMGEN-QUU405224

PATIENT
  Sex: Female

DRUGS (1)
  1. ENBREL [Suspect]
     Indication: PSORIASIS
     Dates: start: 20100303

REACTIONS (2)
  - ADRENAL INSUFFICIENCY [None]
  - THYROID FUNCTION TEST ABNORMAL [None]
